FAERS Safety Report 5094282-3 (Version None)
Quarter: 2006Q3

REPORT INFORMATION
  Report Type: 
  Country: None (occurrence: None)
  Receive Date: 20060831
  Receipt Date: 20060821
  Transmission Date: 20061208
  Serious: Yes (Other)
  Sender: FDA-Public Use
  Company Number: US-GLAXOSMITHKLINE-A0617430A

PATIENT
  Age: 88 Year
  Sex: Female

DRUGS (4)
  1. ECOTRIN ADULT LOW STRENGTH TABLETS [Suspect]
     Indication: COAGULOPATHY
     Dosage: 1TAB IN THE MORNING
     Route: 048
     Dates: start: 20060607, end: 20060801
  2. ATENOLOL [Concomitant]
     Dosage: 100MG TWICE PER DAY
  3. SYNTHROID [Concomitant]
     Dosage: 50MG PER DAY
  4. ZETIA [Concomitant]
     Indication: BLOOD CHOLESTEROL INCREASED
     Dosage: 10MG PER DAY
     Dates: start: 20060607

REACTIONS (4)
  - COUGH [None]
  - HAEMORRHAGE [None]
  - RECTAL HAEMORRHAGE [None]
  - VAGINAL HAEMORRHAGE [None]
